FAERS Safety Report 13006030 (Version 1)
Quarter: 2016Q4

REPORT INFORMATION
  Report Type: Spontaneous
  Country: US (occurrence: US)
  Receive Date: 20161207
  Receipt Date: 20161207
  Transmission Date: 20170207
  Serious: No
  Sender: FDA-Public Use
  Company Number: US-BAUSCH-BL-2016-001694

PATIENT
  Sex: Male

DRUGS (1)
  1. BENZAMYCIN [Suspect]
     Active Substance: BENZOYL PEROXIDE\ERYTHROMYCIN
     Indication: ACNE
     Route: 061
     Dates: start: 20150811, end: 20160115

REACTIONS (2)
  - Product physical issue [Recovered/Resolved]
  - Drug ineffective [Recovered/Resolved]
